FAERS Safety Report 20813604 (Version 3)
Quarter: 2022Q2

REPORT INFORMATION
  Report Type: Other
  Country: US (occurrence: None)
  Receive Date: 20220511
  Receipt Date: 20220630
  Transmission Date: 20220720
  Serious: Yes (Hospitalization)
  Sender: FDA-Public Use
  Company Number: US-ROCHE-3094169

PATIENT
  Age: 55 Year
  Sex: Male
  Weight: 68.100 kg

DRUGS (2)
  1. OCREVUS [Suspect]
     Active Substance: OCRELIZUMAB
     Indication: Primary progressive multiple sclerosis
     Dosage: PRESCRIBED AS INFUSE 600MG INTRAVENOUSLY EVERY 6 MONTHS
     Route: 042
  2. TYSABRI [Concomitant]
     Active Substance: NATALIZUMAB

REACTIONS (2)
  - COVID-19 pneumonia [Recovered/Resolved]
  - Thrombosis [Recovered/Resolved]

NARRATIVE: CASE EVENT DATE: 20220115
